FAERS Safety Report 20216089 (Version 2)
Quarter: 2021Q4

REPORT INFORMATION
  Report Type: Spontaneous
  Country: DE (occurrence: DE)
  Receive Date: 20211222
  Receipt Date: 20211229
  Transmission Date: 20220303
  Serious: Yes (Hospitalization)
  Sender: FDA-Public Use
  Company Number: DE-ADRED-07345-01

PATIENT
  Age: 79 Year
  Sex: Male
  Weight: 94.1 kg

DRUGS (10)
  1. PREDNISONE [Suspect]
     Active Substance: PREDNISONE
     Dosage: 2.5 MG (5 MG, 0.5-0-0-0, TABLETS)
     Route: 048
  2. RAMIPRIL [Suspect]
     Active Substance: RAMIPRIL
     Dosage: 5 MG (5 MG, 1-0-1-0, TABLETS)
     Route: 048
  3. TORSEMIDE [Suspect]
     Active Substance: TORSEMIDE
     Dosage: 20 MG (10 MG, 2-0-0-0, TABLETS)
     Route: 048
  4. LEFLUNOMIDE [Suspect]
     Active Substance: LEFLUNOMIDE
     Dosage: 20 MG (20 MG, 1-0-0-0, TABLETS)
     Route: 048
  5. ASPIRIN [Suspect]
     Active Substance: ASPIRIN
     Dosage: 100 MG (100 MG, 0-1-0-0, TABLETS)
     Route: 048
  6. BISOPROLOL [Concomitant]
     Active Substance: BISOPROLOL
     Dosage: 2.5 MG (5 MG, 0-0-0.5-0, TABLETS)
     Route: 048
  7. SODIUM BICARBONATE [Concomitant]
     Active Substance: SODIUM BICARBONATE
     Dosage: 1 G (1 G, 1-1-1-0, SUSTAINED-RELEASE TABLETS)
     Route: 048
  8. DOXAZOSIN [Concomitant]
     Active Substance: DOXAZOSIN MESYLATE
     Dosage: 4 MG (4 MG, 1-0-1-0, SUSTAINED-RELEASE TABLETS)
     Route: 048
  9. PANTOPRAZOLE [Concomitant]
     Active Substance: PANTOPRAZOLE
     Dosage: 40 MG (40 MG, 1-0-0-0, SUSTAINED-RELEASE TABLETS)
     Route: 048
  10. SIMVASTATIN [Concomitant]
     Active Substance: SIMVASTATIN
     Dosage: 40 MG (40 MG, 0-0-1-0, TABLETS)
     Route: 048

REACTIONS (3)
  - Dyspnoea [Unknown]
  - Weight increased [Unknown]
  - Oedema peripheral [Unknown]
